FAERS Safety Report 6670278-2 (Version None)
Quarter: 2010Q2

REPORT INFORMATION
  Report Type: 
  Country: None (occurrence: None)
  Receive Date: 20100405
  Receipt Date: 20100325
  Transmission Date: 20101027
  Serious: Yes (Other)
  Sender: FDA-Public Use
  Company Number: 009382

PATIENT
  Age: 10 Year
  Sex: Male
  Weight: 27.5 kg

DRUGS (5)
  1. KEPPRA [Suspect]
     Indication: EPILEPSY
     Dosage: (125 MG ORAL)
     Route: 048
     Dates: start: 20100309, end: 20100311
  2. EPILIM [Concomitant]
  3. GAVISCON /00237601/ [Concomitant]
  4. OMEPRAZOLE [Concomitant]
  5. TOPAMAX [Concomitant]

REACTIONS (4)
  - EMOTIONAL DISTRESS [None]
  - HYPOPHAGIA [None]
  - PAIN [None]
  - RASH [None]
